FAERS Safety Report 26019142 (Version 1)
Quarter: 2025Q4

REPORT INFORMATION
  Report Type: Spontaneous
  Country: EU (occurrence: EU)
  Receive Date: 20251110
  Receipt Date: 20251110
  Transmission Date: 20260119
  Serious: Yes (Other)
  Sender: ALEXION PHARMACEUTICALS
  Company Number: EU-ASTRAZENECA-202510EEA032200ES

PATIENT
  Age: 75 Year
  Sex: Male

DRUGS (1)
  1. ULTOMIRIS [Suspect]
     Active Substance: RAVULIZUMAB-CWVZ
     Indication: Myasthenia gravis
     Dosage: UNK
     Route: 065

REACTIONS (19)
  - Neurological symptom [Unknown]
  - Myasthenia gravis crisis [Unknown]
  - Hepatic cirrhosis [Unknown]
  - Metabolic dysfunction-associated steatohepatitis [Unknown]
  - Portal hypertension [Unknown]
  - Hepatic encephalopathy [Unknown]
  - Ascites [Unknown]
  - Pancytopenia [Unknown]
  - Gastrointestinal haemorrhage [Unknown]
  - Hepatic failure [Unknown]
  - Dysstasia [Unknown]
  - Dysphagia [Unknown]
  - Dyslipidaemia [Unknown]
  - Neoplasm [Unknown]
  - Iron deficiency anaemia [Unknown]
  - Angiodysplasia [Unknown]
  - Haemorrhoids [Unknown]
  - Diverticulum [Unknown]
  - Urinary tract infection [Unknown]
